FAERS Safety Report 10080762 (Version 1)
Quarter: 2014Q2

REPORT INFORMATION
  Report Type: Spontaneous
  Country: US (occurrence: None)
  Receive Date: 20140415
  Receipt Date: 20140415
  Transmission Date: 20141212
  Serious: Yes (Other)
  Sender: FDA-Public Use
  Company Number: None

PATIENT
  Sex: Female

DRUGS (2)
  1. SOVALDI [Suspect]
     Indication: HEPATITIS C
     Dosage: 400MG, ONCE DAILY, ORAL
     Route: 048
     Dates: start: 20140325, end: 20140414
  2. RIBASPHERE [Suspect]
     Indication: HEPATITIS C
     Dosage: 3AM, 2PM ORAL.
     Route: 048
     Dates: start: 20140325, end: 20140414

REACTIONS (3)
  - Panic attack [None]
  - Insomnia [None]
  - Memory impairment [None]
